FAERS Safety Report 21181406 (Version 1)
Quarter: 2022Q3

REPORT INFORMATION
  Report Type: Spontaneous
  Country: US (occurrence: US)
  Receive Date: 20220806
  Receipt Date: 20220806
  Transmission Date: 20221026
  Serious: No
  Sender: FDA-Public Use
  Company Number: US-SA-SAC20220802001766

PATIENT

DRUGS (5)
  1. DUPIXENT [Suspect]
     Active Substance: DUPILUMAB
     Indication: Asthma
     Dosage: UNK
  2. DUPIXENT [Suspect]
     Active Substance: DUPILUMAB
     Indication: Type 1 diabetes mellitus
  3. DUPIXENT [Suspect]
     Active Substance: DUPILUMAB
     Indication: Diabetic neuropathy
  4. DUPIXENT [Suspect]
     Active Substance: DUPILUMAB
     Indication: Diabetic retinopathy
  5. DUPIXENT [Suspect]
     Active Substance: DUPILUMAB
     Indication: Neonatal diabetes mellitus

REACTIONS (1)
  - Product use in unapproved indication [Unknown]
